FAERS Safety Report 9110310 (Version 1)
Quarter: 2013Q1

REPORT INFORMATION
  Report Type: Report from Study
  Country: DE (occurrence: DE)
  Receive Date: 20130222
  Receipt Date: 20130222
  Transmission Date: 20140127
  Serious: Yes (Hospitalization, Other)
  Sender: FDA-Public Use
  Company Number: DE-ABBOTT-13P-062-1051860-00

PATIENT
  Sex: Female

DRUGS (6)
  1. HUMIRA [Suspect]
     Indication: CROHN^S DISEASE
     Dosage: 40 MG EVERY TWO TO THREE WEEKS
     Route: 058
     Dates: start: 20120423, end: 20130123
  2. HUMIRA [Suspect]
     Route: 058
     Dates: start: 20130123
  3. AZATHIOPRINE [Suspect]
     Indication: CROHN^S DISEASE
     Dates: end: 201301
  4. CLAVERSAL [Concomitant]
     Indication: CROHN^S DISEASE
  5. OMEPRAZOL [Concomitant]
     Indication: PRODUCT USED FOR UNKNOWN INDICATION
  6. DEKRISTOL [Concomitant]
     Indication: PRODUCT USED FOR UNKNOWN INDICATION

REACTIONS (4)
  - Weight decreased [Recovering/Resolving]
  - Diarrhoea [Recovering/Resolving]
  - Abdominal pain [Recovering/Resolving]
  - Pancreatitis [Recovering/Resolving]
